FAERS Safety Report 24548578 (Version 1)
Quarter: 2024Q4

REPORT INFORMATION
  Report Type: Spontaneous
  Country: CN (occurrence: CN)
  Receive Date: 20241025
  Receipt Date: 20241025
  Transmission Date: 20250114
  Serious: Yes (Hospitalization, Disabling)
  Sender: MACLEODS
  Company Number: CN-MLMSERVICE-20241008-PI217714-00198-1

PATIENT

DRUGS (17)
  1. LEVOFLOXACIN [Suspect]
     Active Substance: LEVOFLOXACIN
     Indication: Urinary tract infection
     Route: 048
     Dates: start: 20211202
  2. LEVOFLOXACIN [Suspect]
     Active Substance: LEVOFLOXACIN
     Route: 048
     Dates: start: 20220130, end: 202202
  3. INSULIN NOS [Concomitant]
     Active Substance: INSULIN NOS
     Dosage: LONG-TERM
     Route: 065
  4. ACARBOSE [Concomitant]
     Active Substance: ACARBOSE
     Route: 065
  5. SOLIFENACIN [Concomitant]
     Active Substance: SOLIFENACIN
     Indication: Cystitis
     Route: 065
     Dates: start: 20220130
  6. MOMETASONE FUROATE [Concomitant]
     Active Substance: MOMETASONE FUROATE
     Indication: Antiallergic therapy
     Route: 065
     Dates: start: 20220130
  7. RANITIDINE [Concomitant]
     Active Substance: RANITIDINE
     Indication: Antiallergic therapy
     Route: 065
     Dates: start: 20220130
  8. TRIAMCINOLONE ACETONIDE [Concomitant]
     Active Substance: TRIAMCINOLONE ACETONIDE
     Indication: Antiallergic therapy
     Route: 065
     Dates: start: 20220130
  9. METHYLPREDNISOLONE [Concomitant]
     Active Substance: METHYLPREDNISOLONE
     Indication: Antiallergic therapy
     Dosage: METHYLPREDNISOLONE 80 MG ONCE A DAY FOR 7 DAYS
     Route: 042
     Dates: start: 20220201, end: 20220208
  10. CLINDAMYCIN PHOSPHATE [Concomitant]
     Active Substance: CLINDAMYCIN PHOSPHATE
     Indication: Prophylaxis
     Route: 065
     Dates: start: 20220201
  11. DESLORATADINE [Concomitant]
     Active Substance: DESLORATADINE
     Indication: Hypersensitivity
     Dosage: 8.8 MG DESLORATADINE TABLETS
     Route: 065
     Dates: start: 20220201
  12. EBASTINE [Concomitant]
     Active Substance: EBASTINE
     Indication: Product used for unknown indication
     Dosage: 10 MG EBASTINE TABLETS
     Route: 065
     Dates: start: 20220201
  13. CITRATE LORATADINE [Concomitant]
     Indication: Hypersensitivity
     Dosage: 8.8 MG CITRATE LORATADINE TABLET
     Route: 048
     Dates: start: 202202, end: 202203
  14. MEROPENEM [Concomitant]
     Active Substance: MEROPENEM
     Indication: Antibiotic therapy
     Dosage: MEROPENEM 1 G PUMP THREE TIMES A DAY
     Route: 065
     Dates: start: 202202, end: 202203
  15. TEICOPLANIN [Concomitant]
     Active Substance: TEICOPLANIN
     Indication: Antibiotic therapy
     Dosage: TEICOPLANIN 0.4 G PUMP TWICE DAILY FOR 5 DOSES
     Route: 065
     Dates: start: 202202
  16. TEICOPLANIN [Concomitant]
     Active Substance: TEICOPLANIN
     Dosage: A MAINTENANCE DOSE 0.4 G ONCE DAILY
     Route: 065
     Dates: start: 202202
  17. CASPOFUNGIN [Concomitant]
     Active Substance: CASPOFUNGIN
     Indication: Antibiotic therapy
     Route: 065
     Dates: start: 202202

REACTIONS (2)
  - Peripheral artery occlusion [Recovered/Resolved]
  - Toxic epidermal necrolysis [Recovered/Resolved]

NARRATIVE: CASE EVENT DATE: 20211202
